FAERS Safety Report 18724853 (Version 1)
Quarter: 2021Q1

REPORT INFORMATION
  Report Type: Spontaneous
  Country: US (occurrence: US)
  Receive Date: 20210111
  Receipt Date: 20210111
  Transmission Date: 20210419
  Serious: Yes (Hospitalization)
  Sender: FDA-Public Use
  Company Number: None

PATIENT
  Age: 59 Year
  Sex: Female

DRUGS (2)
  1. MODAFINIL. [Concomitant]
     Active Substance: MODAFINIL
  2. PLEGRIDY [Suspect]
     Active Substance: PEGINTERFERON BETA-1A
     Indication: MULTIPLE SCLEROSIS
     Dosage: ?          OTHER FREQUENCY:EVERY 14 DAYS;?
     Route: 058
     Dates: start: 20200812

REACTIONS (7)
  - Knee arthroplasty [None]
  - Fatigue [None]
  - Injection site pruritus [None]
  - Depression [None]
  - Blood disorder [None]
  - Injection site reaction [None]
  - Injection site erythema [None]

NARRATIVE: CASE EVENT DATE: 20201203
